FAERS Safety Report 20462588 (Version 2)
Quarter: 2022Q3

REPORT INFORMATION
  Report Type: Spontaneous
  Country: US (occurrence: None)
  Receive Date: 20220211
  Receipt Date: 20220805
  Transmission Date: 20221027
  Serious: Yes (Other)
  Sender: FDA-Public Use
  Company Number: 2022A062543

PATIENT
  Age: 18855 Day
  Sex: Female
  Weight: 73.9 kg

DRUGS (39)
  1. PRILOSEC [Suspect]
     Active Substance: OMEPRAZOLE MAGNESIUM
     Indication: Gastrooesophageal reflux disease
     Route: 048
     Dates: start: 2011, end: 2018
  2. PRILOSEC [Suspect]
     Active Substance: OMEPRAZOLE MAGNESIUM
     Indication: Gastrooesophageal reflux disease
     Dosage: GENERIC
     Route: 065
     Dates: start: 2010, end: 2013
  3. NEXIUM [Suspect]
     Active Substance: ESOMEPRAZOLE MAGNESIUM
     Indication: Gastrooesophageal reflux disease
     Dosage: GENERIC
     Route: 065
     Dates: start: 2019
  4. PROTONIX [Suspect]
     Active Substance: PANTOPRAZOLE SODIUM
     Indication: Gastrooesophageal reflux disease
     Route: 065
     Dates: start: 2011, end: 2018
  5. PROTONIX [Suspect]
     Active Substance: PANTOPRAZOLE SODIUM
     Indication: Gastrooesophageal reflux disease
     Dosage: GENERIC
     Route: 065
     Dates: start: 2013, end: 2019
  6. FUROSEMIDE [Concomitant]
     Active Substance: FUROSEMIDE
     Indication: Fluid retention
     Dates: start: 2010, end: 2019
  7. FUROSEMIDE [Concomitant]
     Active Substance: FUROSEMIDE
     Indication: Swelling
     Dates: start: 2010, end: 2019
  8. LISINOPRIL [Concomitant]
     Active Substance: LISINOPRIL
     Indication: Hypertension
     Dates: start: 2015, end: 2017
  9. DOXYCYCLINE [Concomitant]
     Active Substance: DOXYCYCLINE
     Indication: Infection
     Dates: start: 2011, end: 2019
  10. CIPROFLOXACIN [Concomitant]
     Active Substance: CIPROFLOXACIN
     Indication: Infection
     Dates: start: 2018
  11. LEVOFLOXACIN [Concomitant]
     Active Substance: LEVOFLOXACIN
     Indication: Infection
     Dates: start: 2012, end: 2014
  12. CELEBREX [Concomitant]
     Active Substance: CELECOXIB
     Indication: Pain
     Dates: start: 2015
  13. DOCOSAHEXAENOIC ACID/TOCOPHEROL/EICOSAPENTAENOIC ACID/OMEGA-3-ACID ETH [Concomitant]
     Indication: Blood cholesterol increased
     Dates: start: 2018, end: 2020
  14. ASPIRIN [Concomitant]
     Active Substance: ASPIRIN
     Indication: Pain
     Dates: start: 2017, end: 2018
  15. FAMOTIDINE [Concomitant]
     Active Substance: FAMOTIDINE
     Dates: start: 2017, end: 2019
  16. PEPCID [Concomitant]
     Active Substance: FAMOTIDINE
     Dates: start: 2008, end: 2018
  17. ZANTAC [Concomitant]
     Active Substance: RANITIDINE HYDROCHLORIDE
     Dates: start: 2008, end: 2019
  18. ZANTAC [Concomitant]
     Active Substance: RANITIDINE HYDROCHLORIDE
     Dates: start: 2010, end: 2020
  19. GAVISCON [Concomitant]
     Active Substance: ALUMINUM HYDROXIDE\MAGNESIUM CARBONATE
     Dates: start: 2008, end: 2010
  20. BACLOFEN [Concomitant]
     Active Substance: BACLOFEN
     Dates: start: 2008, end: 2010
  21. BUPROPION [Concomitant]
     Active Substance: BUPROPION
     Dates: start: 2008, end: 2010
  22. FENOFIBRATE [Concomitant]
     Active Substance: FENOFIBRATE
     Dates: start: 2008, end: 2010
  23. KLOR-CON [Concomitant]
     Active Substance: POTASSIUM CHLORIDE
     Dates: start: 2008, end: 2010
  24. WELLBUTRIN [Concomitant]
     Active Substance: BUPROPION HYDROCHLORIDE
     Dates: start: 2008, end: 2010
  25. REGLAN [Concomitant]
     Active Substance: METOCLOPRAMIDE HYDROCHLORIDE
     Dates: start: 2008, end: 2010
  26. ZESTRIL [Concomitant]
     Active Substance: LISINOPRIL
     Dates: start: 2008, end: 2010
  27. XANAX [Concomitant]
     Active Substance: ALPRAZOLAM
     Dates: start: 2008, end: 2010
  28. METOPROLOL [Concomitant]
     Active Substance: METOPROLOL
     Dates: start: 2008, end: 2010
  29. HYDROXYZINE [Concomitant]
     Active Substance: HYDROXYZINE HYDROCHLORIDE
     Dates: start: 2008, end: 2010
  30. SINGULAIR [Concomitant]
     Active Substance: MONTELUKAST SODIUM
     Dates: start: 2008, end: 2010
  31. TRICOR [Concomitant]
     Active Substance: FENOFIBRATE
     Dates: start: 2008, end: 2010
  32. K-DUR [Concomitant]
     Active Substance: POTASSIUM CHLORIDE
     Dates: start: 2008, end: 2010
  33. LEVAQUIN [Concomitant]
     Active Substance: LEVOFLOXACIN
     Dates: start: 2008, end: 2010
  34. CHANTIX [Concomitant]
     Active Substance: VARENICLINE TARTRATE
     Dates: start: 2008, end: 2010
  35. PREDNISONE [Concomitant]
     Active Substance: PREDNISONE
     Dates: start: 2008, end: 2010
  36. NORCO [Concomitant]
     Active Substance: ACETAMINOPHEN\HYDROCODONE BITARTRATE
     Dates: start: 2008, end: 2010
  37. SOMA [Concomitant]
     Active Substance: CARISOPRODOL
     Dates: start: 2008, end: 2010
  38. ALPRAZOLAM [Concomitant]
     Active Substance: ALPRAZOLAM
     Dates: start: 2008, end: 2010
  39. OXYCODONE [Concomitant]
     Active Substance: OXYCODONE
     Dates: start: 2008, end: 2010

REACTIONS (3)
  - Chronic kidney disease [Not Recovered/Not Resolved]
  - Renal failure [Unknown]
  - Acute kidney injury [Unknown]

NARRATIVE: CASE EVENT DATE: 20101002
